FAERS Safety Report 14228384 (Version 1)
Quarter: 2017Q4

REPORT INFORMATION
  Report Type: Spontaneous
  Country: US (occurrence: None)
  Receive Date: 20171124
  Receipt Date: 20171124
  Transmission Date: 20180321
  Serious: No
  Sender: FDA-Public Use
  Company Number: None

PATIENT
  Age: 65 Year
  Sex: Female

DRUGS (1)
  1. SUTENT [Suspect]
     Active Substance: SUNITINIB MALATE
     Indication: NEOPLASM MALIGNANT
     Dosage: 37.5 DAILY FOR 21DS AND 7 DAYS OFF BY MOUTH
     Route: 048
     Dates: start: 20140201

REACTIONS (2)
  - Palmar-plantar erythrodysaesthesia syndrome [None]
  - Skin discolouration [None]

NARRATIVE: CASE EVENT DATE: 20171001
